FAERS Safety Report 14251893 (Version 5)
Quarter: 2022Q1

REPORT INFORMATION
  Report Type: Spontaneous
  Country: FR (occurrence: FR)
  Receive Date: 20171205
  Receipt Date: 20220322
  Transmission Date: 20220423
  Serious: Yes (Life-Threatening)
  Sender: FDA-Public Use
  Company Number: FR-AFSSAPS-PC20171423

PATIENT
  Age: 24 Year
  Sex: Male
  Weight: 70 kg

DRUGS (6)
  1. HALDOL [Suspect]
     Active Substance: HALOPERIDOL
     Indication: Schizophrenia
     Route: 048
     Dates: start: 20170720, end: 20170720
  2. AMISULPRIDE [Suspect]
     Active Substance: AMISULPRIDE
     Indication: Schizophrenia
     Route: 048
     Dates: start: 20170929, end: 20171012
  3. AMISULPRIDE [Suspect]
     Active Substance: AMISULPRIDE
     Route: 048
     Dates: start: 20171013, end: 20171118
  4. DIAZEPAM [Suspect]
     Active Substance: DIAZEPAM
     Indication: Agitation
     Route: 048
     Dates: start: 20170715
  5. ZOPICLONE [Suspect]
     Active Substance: ZOPICLONE
     Indication: Insomnia
     Route: 048
     Dates: start: 20170715
  6. TRIMEPRAZINE [Suspect]
     Active Substance: TRIMEPRAZINE
     Indication: Insomnia
     Route: 048
     Dates: start: 20170823, end: 20171118

REACTIONS (3)
  - Loss of consciousness [Not Recovered/Not Resolved]
  - Fall [Unknown]
  - Neutropenia [Not Recovered/Not Resolved]

NARRATIVE: CASE EVENT DATE: 20171118
